FAERS Safety Report 16633065 (Version 4)
Quarter: 2021Q1

REPORT INFORMATION
  Report Type: Report from Study
  Country: US (occurrence: US)
  Receive Date: 20190725
  Receipt Date: 20210222
  Transmission Date: 20210419
  Serious: Yes (Hospitalization, Other)
  Sender: FDA-Public Use
  Company Number: US-TAKEDA-2019TUS045121

PATIENT
  Sex: Female

DRUGS (4)
  1. PONATINIB [Suspect]
     Active Substance: PONATINIB
     Dosage: 15 MILLIGRAM, QOD
     Route: 048
  2. PONATINIB [Suspect]
     Active Substance: PONATINIB
     Dosage: 15 MILLIGRAM, QD
     Route: 048
  3. PONATINIB [Suspect]
     Active Substance: PONATINIB
     Indication: ACUTE LYMPHOCYTIC LEUKAEMIA
     Dosage: 15 MILLIGRAM, QD
     Route: 048
     Dates: start: 20150702
  4. PONATINIB [Suspect]
     Active Substance: PONATINIB
     Dosage: 15 MILLIGRAM, QOD
     Route: 048

REACTIONS (10)
  - Headache [Unknown]
  - Pancreatitis [Unknown]
  - Bone disorder [Unknown]
  - Blood cholesterol increased [Unknown]
  - Constipation [Unknown]
  - Off label use [Unknown]
  - Nervous system disorder [Unknown]
  - Gastrooesophageal reflux disease [Unknown]
  - Migraine [Unknown]
  - Vomiting [Unknown]
